FAERS Safety Report 9390216 (Version 1)
Quarter: 2013Q3

REPORT INFORMATION
  Report Type: Spontaneous
  Country: US (occurrence: US)
  Receive Date: 20130708
  Receipt Date: 20130708
  Transmission Date: 20140515
  Serious: No
  Sender: FDA-Public Use
  Company Number: US-AMGEN-USASP2013045504

PATIENT
  Age: 64 Year
  Sex: Male

DRUGS (3)
  1. ENBREL [Suspect]
     Indication: RHEUMATOID ARTHRITIS
     Dosage: 50 MG, QWK
     Route: 065
     Dates: start: 20130521
  2. METHOTREXATE [Concomitant]
     Dosage: 2.5 MG, QWK,  6 TABLETSWEEKLY
     Dates: start: 2013
  3. PREDNISONE [Concomitant]
     Dosage: 10 MG, QD
     Dates: start: 2013

REACTIONS (1)
  - Insomnia [Not Recovered/Not Resolved]
